FAERS Safety Report 7029289-X (Version None)
Quarter: 2010Q4

REPORT INFORMATION
  Report Type: 
  Country: None (occurrence: None)
  Receive Date: 20101005
  Receipt Date: 20100921
  Transmission Date: 20110411
  Serious: Yes (Death, Hospitalization, Other)
  Sender: FDA-Public Use
  Company Number: PHEH2006US15224

PATIENT
  Sex: Female

DRUGS (22)
  1. AREDIA [Suspect]
  2. ZOMETA [Suspect]
  3. PREDNISONE [Concomitant]
     Dosage: 40 MG, UNK
  4. ALKERAN [Concomitant]
     Dosage: 8 MG/ DAY
  5. CEMIDON [Concomitant]
  6. TEMAZEPAM [Concomitant]
  7. OXYCONTIN [Concomitant]
  8. OXYCODONE HCL AND ACETAMINOPHEN [Concomitant]
  9. CHLORHEXIDINE GLUCONATE [Concomitant]
  10. COUMADIN [Concomitant]
  11. METOPROLOL [Concomitant]
  12. VITAMIN B-12 [Concomitant]
  13. VELCADE [Concomitant]
  14. DECADRON [Concomitant]
  15. ARANESP [Concomitant]
  16. NEUPOGEN [Concomitant]
  17. CYTOXAN [Concomitant]
  18. VINCRISTINE [Concomitant]
  19. CARMUSTINE [Concomitant]
  20. OXYCODONE HCL AND ACETAMINOPHEN [Concomitant]
  21. OXYCODONE [Concomitant]
  22. WARFARIN [Concomitant]

REACTIONS (44)
  - ANXIETY [None]
  - ASTHENIA [None]
  - ASTIGMATISM [None]
  - BONE DISORDER [None]
  - BRAIN OEDEMA [None]
  - BRAIN OPERATION [None]
  - CELLULITIS [None]
  - CENTRAL NERVOUS SYSTEM LESION [None]
  - CONTUSION [None]
  - DEATH [None]
  - DECREASED INTEREST [None]
  - DEEP VEIN THROMBOSIS [None]
  - DEPRESSED LEVEL OF CONSCIOUSNESS [None]
  - EPISTAXIS [None]
  - EYE MOVEMENT DISORDER [None]
  - FALL [None]
  - FATIGUE [None]
  - FISTULA [None]
  - GAIT DISTURBANCE [None]
  - GENERAL PHYSICAL HEALTH DETERIORATION [None]
  - GINGIVAL INFECTION [None]
  - HYPERCAPNIA [None]
  - HYPERCOAGULATION [None]
  - LENS DISORDER [None]
  - LUNG INFILTRATION [None]
  - METASTATIC NEOPLASM [None]
  - MYELOMA RECURRENCE [None]
  - NEUROPATHY PERIPHERAL [None]
  - NORMOCHROMIC NORMOCYTIC ANAEMIA [None]
  - OEDEMA PERIPHERAL [None]
  - OSTEONECROSIS OF JAW [None]
  - PAIN [None]
  - PAIN IN EXTREMITY [None]
  - PANCYTOPENIA [None]
  - PLASMACYTOMA [None]
  - PURULENCE [None]
  - RENAL FAILURE [None]
  - SKIN LACERATION [None]
  - SOFT TISSUE INFLAMMATION [None]
  - SWELLING FACE [None]
  - THROMBOCYTOPENIA [None]
  - TOOTH EXTRACTION [None]
  - URINARY TRACT INFECTION [None]
  - URINE ANALYSIS ABNORMAL [None]
